FAERS Safety Report 5319413-9 (Version None)
Quarter: 2007Q2

REPORT INFORMATION
  Report Type: 
  Country: None (occurrence: None)
  Receive Date: 20070508
  Receipt Date: 20070504
  Transmission Date: 20071010
  Serious: Yes (Life-Threatening, Other)
  Sender: FDA-Public Use
  Company Number: GB-BRISTOL-MYERS SQUIBB COMPANY-13719356

PATIENT
  Age: 31 Year
  Sex: Female
  Weight: 51 kg

DRUGS (2)
  1. SUSTIVA [Suspect]
     Route: 048
     Dates: start: 20060616, end: 20070201
  2. KIVEXA [Concomitant]
     Dates: start: 20060616

REACTIONS (4)
  - DRUG LEVEL INCREASED [None]
  - NEUROTOXICITY [None]
  - OVERDOSE [None]
  - WEIGHT DECREASED [None]
